FAERS Safety Report 8380979-6 (Version None)
Quarter: 2012Q2

REPORT INFORMATION
  Report Type: 
  Country: None (occurrence: None)
  Receive Date: 20120523
  Receipt Date: 20120517
  Transmission Date: 20120825
  Serious: Yes (Other)
  Sender: FDA-Public Use
  Company Number: US-PFIZER INC-2012116816

PATIENT
  Age: 73 Year
  Sex: Female

DRUGS (1)
  1. AMIODARONE HCL [Suspect]
     Indication: TACHYARRHYTHMIA
     Dosage: UNK

REACTIONS (2)
  - NEUROMYOPATHY [None]
  - HYPOTHYROIDISM [None]
